FAERS Safety Report 8402306-8 (Version None)
Quarter: 2012Q2

REPORT INFORMATION
  Report Type: 
  Country: None (occurrence: None)
  Receive Date: 20120601
  Receipt Date: 20120525
  Transmission Date: 20120825
  Serious: Yes (Death, Hospitalization)
  Sender: FDA-Public Use
  Company Number: US-TEVA-340162USA

PATIENT
  Age: 52 Year

DRUGS (1)
  1. TREANDA [Suspect]
     Route: 042

REACTIONS (3)
  - CHRONIC OBSTRUCTIVE PULMONARY DISEASE [None]
  - PNEUMONITIS [None]
  - IMMUNOSUPPRESSION [None]
